FAERS Safety Report 25438048 (Version 2)
Quarter: 2025Q2

REPORT INFORMATION
  Report Type: Report from Study
  Country: EG (occurrence: EG)
  Receive Date: 20250616
  Receipt Date: 20250624
  Transmission Date: 20250716
  Serious: Yes (Hospitalization)
  Sender: ABBVIE
  Company Number: EG-ABBVIE-6296675

PATIENT
  Age: 25 Year
  Sex: Female

DRUGS (7)
  1. RINVOQ [Suspect]
     Active Substance: UPADACITINIB
     Indication: Crohn^s disease
     Dosage: 2 TABLET, FORM STRENGTH: 15 MG
     Route: 048
     Dates: start: 20240929, end: 202505
  2. RINVOQ [Suspect]
     Active Substance: UPADACITINIB
     Indication: Crohn^s disease
     Dosage: 3 TABLET, FORM STRENGTH: 15 MG
     Route: 048
     Dates: start: 20240513, end: 202408
  3. RINVOQ [Suspect]
     Active Substance: UPADACITINIB
     Indication: Crohn^s disease
     Dosage: 1 TABLET, FORM STRENGTH: 15 MG
     Route: 048
     Dates: start: 202408, end: 202409
  4. RINVOQ [Suspect]
     Active Substance: UPADACITINIB
     Indication: Crohn^s disease
     Route: 048
     Dates: end: 202505
  5. RINVOQ [Suspect]
     Active Substance: UPADACITINIB
     Indication: Crohn^s disease
     Dosage: FORM STRENGTH- 15 MILLIGRAM
     Route: 048
     Dates: start: 20250523
  6. VITAMIN D [Concomitant]
     Active Substance: VITAMIN D NOS
     Indication: Crohn^s disease
  7. IRON [Concomitant]
     Active Substance: IRON
     Indication: Crohn^s disease

REACTIONS (9)
  - Chest discomfort [Unknown]
  - Gastrointestinal disorder [Recovered/Resolved]
  - Respiratory disorder [Unknown]
  - Nasopharyngitis [Recovered/Resolved]
  - Pyrexia [Recovered/Resolved]
  - Cough [Recovered/Resolved]
  - Asthma [Unknown]
  - Immunodeficiency [Unknown]
  - Hypotension [Unknown]

NARRATIVE: CASE EVENT DATE: 20250326
